FAERS Safety Report 6593225-0 (Version None)
Quarter: 2010Q1

REPORT INFORMATION
  Report Type: 
  Country: None (occurrence: None)
  Receive Date: 20100222
  Receipt Date: 20100211
  Transmission Date: 20100710
  Serious: Yes (Other)
  Sender: FDA-Public Use
  Company Number: US-AMGEN-QUU389355

PATIENT
  Sex: Male
  Weight: 119.4 kg

DRUGS (16)
  1. NEULASTA [Suspect]
     Indication: CHEMOTHERAPY
     Route: 058
     Dates: start: 20100123, end: 20100123
  2. FISH OIL [Concomitant]
  3. VITAMIN B6 [Concomitant]
  4. SPIRIVA [Concomitant]
  5. COMBIVENT [Concomitant]
  6. UNSPECIFIED ANTINEOPLASTIC AGENT [Concomitant]
  7. MULTI-VITAMINS [Concomitant]
  8. VITAMIN C [Concomitant]
  9. VITAMIN D [Concomitant]
  10. CALCIUM [Concomitant]
  11. IRON [Concomitant]
  12. POTASSIUM [Concomitant]
  13. MAGNESIUM [Concomitant]
  14. CEPHALEXIN [Concomitant]
  15. VITAMIN B COMPLEX CAP [Concomitant]
  16. ZINC [Concomitant]

REACTIONS (6)
  - ANAEMIA [None]
  - DYSPNOEA [None]
  - LEUKOCYTOSIS [None]
  - LYMPHADENOPATHY [None]
  - METASTASES TO BONE [None]
  - THROMBOCYTOPENIA [None]
